FAERS Safety Report 16642325 (Version 1)
Quarter: 2019Q3

REPORT INFORMATION
  Report Type: Spontaneous
  Country: US (occurrence: US)
  Receive Date: 20190729
  Receipt Date: 20190729
  Transmission Date: 20191004
  Serious: Yes (Hospitalization)
  Sender: FDA-Public Use
  Company Number: US-BRECKENRIDGE PHARMACEUTICAL, INC.-2071411

PATIENT
  Age: 42 Year
  Sex: Female
  Weight: 115.7 kg

DRUGS (12)
  1. ELAGOLIX [Suspect]
     Active Substance: ELAGOLIX
     Dates: start: 20181015
  2. LISINOPRIL. [Concomitant]
     Active Substance: LISINOPRIL
     Dates: start: 20190515
  3. ATORVASTATIN CALCIUM. [Concomitant]
     Active Substance: ATORVASTATIN CALCIUM
     Dates: start: 2015
  4. SPIRIVA [Concomitant]
     Active Substance: TIOTROPIUM BROMIDE MONOHYDRATE
  5. FERROUS SULFATE. [Concomitant]
     Active Substance: FERROUS SULFATE
     Dates: start: 20181017
  6. VITAMIN D [Concomitant]
     Active Substance: VITAMIN D NOS
  7. JANUVIA [Concomitant]
     Active Substance: SITAGLIPTIN PHOSPHATE
     Dates: start: 20190515
  8. ESTRADIOL AND NORETHINDRONE ACETATE [Suspect]
     Active Substance: ESTRADIOL\NORETHINDRONE ACETATE
     Indication: UTERINE LEIOMYOMA
     Route: 048
     Dates: start: 20181015
  9. PROVENTIL [Concomitant]
     Active Substance: ALBUTEROL
     Dates: start: 20180728
  10. NOVOLOG [Suspect]
     Active Substance: INSULIN ASPART
     Dates: start: 20190515
  11. BASAGLAR [Suspect]
     Active Substance: INSULIN GLARGINE
     Dates: start: 20190515
  12. JARDIANCE [Suspect]
     Active Substance: EMPAGLIFLOZIN
     Dates: start: 201804

REACTIONS (5)
  - Chest pain [None]
  - Anxiety [None]
  - Hypoglycaemia [None]
  - Dyspnoea [None]
  - Depression [None]
